FAERS Safety Report 5903169-2 (Version None)
Quarter: 2008Q3

REPORT INFORMATION
  Report Type: 
  Country: None (occurrence: None)
  Receive Date: 20080929
  Receipt Date: 20080929
  Transmission Date: 20090109
  Serious: No
  Sender: FDA-Public Use
  Company Number: None

PATIENT
  Age: 35 Year
  Sex: Female
  Weight: 52 kg

DRUGS (1)
  1. MECLIZINE [Suspect]
     Indication: DIZZINESS
     Dosage: 1
     Dates: start: 20080926, end: 20080927

REACTIONS (3)
  - HYPERACUSIS [None]
  - SOMNOLENCE [None]
  - VISION BLURRED [None]
